FAERS Safety Report 17589762 (Version 2)
Quarter: 2021Q2

REPORT INFORMATION
  Report Type: Spontaneous
  Country: US (occurrence: US)
  Receive Date: 20200327
  Receipt Date: 20210413
  Transmission Date: 20210716
  Serious: No
  Sender: FDA-Public Use
  Company Number: US-ALLERGAN-1947197US

PATIENT
  Age: 57 Year
  Sex: Female

DRUGS (4)
  1. LATISSE [Suspect]
     Active Substance: BIMATOPROST
     Indication: PRODUCT USED FOR UNKNOWN INDICATION
  2. VITAMINS NOS [Concomitant]
     Active Substance: VITAMINS
     Route: 048
  3. CASTOR OIL. [Concomitant]
     Active Substance: CASTOR OIL
  4. BIOIDENTICAL NATURALLY COMPOUNDED HORMONES [Concomitant]
     Route: 048

REACTIONS (8)
  - Inappropriate schedule of product administration [Unknown]
  - Dry eye [Unknown]
  - Product dose omission issue [Unknown]
  - Incorrect dose administered [Unknown]
  - Drug ineffective [Unknown]
  - Eye pruritus [Unknown]
  - Wrong technique in product usage process [Unknown]
  - Blepharal pigmentation [Unknown]
